FAERS Safety Report 7410264-8 (Version None)
Quarter: 2011Q2

REPORT INFORMATION
  Report Type: 
  Country: None (occurrence: None)
  Receive Date: 20110412
  Receipt Date: 20110401
  Transmission Date: 20111010
  Serious: Yes (Other)
  Sender: FDA-Public Use
  Company Number: PHHY2011FR20249

PATIENT
  Sex: Female

DRUGS (1)
  1. RASILEZ HCT [Suspect]
     Indication: HYPERTENSION
     Dosage: ALISKIREN 300MG AND HYDROCHLOROTHIAZIDE12.5MG (ONE TABLET DAILY)
     Route: 048
     Dates: start: 20110222

REACTIONS (1)
  - CYTOLYTIC HEPATITIS [None]
